FAERS Safety Report 9225642 (Version 1)
Quarter: 2013Q2

REPORT INFORMATION
  Report Type: Spontaneous
  Country: US (occurrence: US)
  Receive Date: 20130411
  Receipt Date: 20130411
  Transmission Date: 20140414
  Serious: Yes (Death)
  Sender: FDA-Public Use
  Company Number: US-GLAXOSMITHKLINE-A1019524A

PATIENT
  Age: 63 Year
  Sex: Female

DRUGS (13)
  1. PROMACTA [Suspect]
     Dosage: 50MG PER DAY
     Route: 048
     Dates: start: 20120119
  2. ANDRODERM [Concomitant]
  3. LEVAQUIN [Concomitant]
  4. FLUCONAZOLE [Concomitant]
  5. ZOLPIDEM [Concomitant]
  6. HYDROCHLOROTHIAZIDE [Concomitant]
  7. SULFAMETHOXAZOLE [Concomitant]
  8. POTASSIUM [Concomitant]
  9. CARVEDILOL [Concomitant]
  10. TAMSULOSIN [Concomitant]
  11. ACYCLOVIR [Concomitant]
  12. FUROSEMIDE [Concomitant]
  13. BETHANECHOL [Concomitant]

REACTIONS (1)
  - Death [Fatal]
